FAERS Safety Report 9925320 (Version 1)
Quarter: 2014Q1

REPORT INFORMATION
  Report Type: Spontaneous
  Country: IT (occurrence: IT)
  Receive Date: 20140226
  Receipt Date: 20140226
  Transmission Date: 20141002
  Serious: Yes (Hospitalization)
  Sender: FDA-Public Use
  Company Number: IT-WATSON-2014-03070

PATIENT
  Age: 44 Year
  Sex: Female

DRUGS (1)
  1. KETOPROFEN (UNKNOWN) [Suspect]
     Indication: PAIN
     Dosage: 240 MG, TOTAL
     Route: 048
     Dates: start: 20140123, end: 20140123

REACTIONS (2)
  - Rash [Recovering/Resolving]
  - Toxic skin eruption [Recovering/Resolving]
